FAERS Safety Report 15414961 (Version 3)
Quarter: 2018Q4

REPORT INFORMATION
  Report Type: Report from Study
  Country: BR (occurrence: BR)
  Receive Date: 20180921
  Receipt Date: 20181110
  Transmission Date: 20190204
  Serious: Yes (Life-Threatening, Other)
  Sender: FDA-Public Use
  Company Number: PHHY2018BR104349

PATIENT
  Age: 84 Year
  Sex: Female
  Weight: 50 kg

DRUGS (3)
  1. EXELON PATCH [Suspect]
     Active Substance: RIVASTIGMINE
     Indication: DEMENTIA ALZHEIMER^S TYPE
     Dosage: 4.6 MG, QD, PATCH 5 (CM2) (FOR ONE MONTH)
     Route: 062
     Dates: start: 20180901
  2. EXELON PATCH [Suspect]
     Active Substance: RIVASTIGMINE
     Dosage: 9.5 MG, QD, PATCH 10 (CM2) (2 MONTHS AGO)
     Route: 062
  3. DONEPEZIL. [Suspect]
     Active Substance: DONEPEZIL
     Indication: DEMENTIA ALZHEIMER^S TYPE
     Dosage: UNK UNK, QD (4 YEARS AGO)
     Route: 048

REACTIONS (8)
  - Depressed mood [Not Recovered/Not Resolved]
  - Hallucination [Unknown]
  - Anxiety [Unknown]
  - Agitation [Not Recovered/Not Resolved]
  - Application site hypersensitivity [Unknown]
  - Abdominal distension [Unknown]
  - Insomnia [Not Recovered/Not Resolved]
  - Application site pruritus [Unknown]

NARRATIVE: CASE EVENT DATE: 20180912
